FAERS Safety Report 6519113-3 (Version None)
Quarter: 2009Q4

REPORT INFORMATION
  Report Type: 
  Country: None (occurrence: None)
  Receive Date: 20091228
  Receipt Date: 20091221
  Transmission Date: 20100525
  Serious: Yes (Other)
  Sender: FDA-Public Use
  Company Number: US-BAYER-200917763BCC

PATIENT
  Age: 21 Year
  Sex: Male
  Weight: 132 kg

DRUGS (1)
  1. BRONKAID DUAL ACTION [Suspect]
     Indication: NASAL CONGESTION
     Dosage: UNIT DOSE: 1 DF
     Route: 048
     Dates: start: 20091219, end: 20091220

REACTIONS (3)
  - DEHYDRATION [None]
  - EATING DISORDER [None]
  - RENAL PAIN [None]
